FAERS Safety Report 8240533-3 (Version None)
Quarter: 2012Q1

REPORT INFORMATION
  Report Type: 
  Country: None (occurrence: None)
  Receive Date: 20120328
  Receipt Date: 20120313
  Transmission Date: 20120608
  Serious: Yes (Hospitalization)
  Sender: FDA-Public Use
  Company Number: GB-ROCHE-1021667

PATIENT
  Sex: Female
  Weight: 99.8 kg

DRUGS (8)
  1. LANSOPRAZOLE [Suspect]
     Indication: GASTROOESOPHAGEAL REFLUX PROPHYLAXIS
     Route: 048
     Dates: start: 20100907, end: 20100928
  2. TRANEXAMIC ACID [Suspect]
     Indication: PRODUCT USED FOR UNKNOWN INDICATION
     Dates: start: 20100922, end: 20100928
  3. IMMUNE GLOBULIN NOS [Suspect]
     Indication: HAEMATOLOGY TEST ABNORMAL
     Route: 042
  4. NORETHIDRONE [Concomitant]
     Route: 048
     Dates: start: 20100922, end: 20100928
  5. IMMUNE GLOBULIN NOS [Suspect]
     Dates: start: 20100922, end: 20100923
  6. NPLATE [Suspect]
     Indication: IDIOPATHIC THROMBOCYTOPENIC PURPURA
     Dosage: 1 MUG/KG
     Route: 058
     Dates: start: 20100420, end: 20100920
  7. RITUXIMAB [Suspect]
     Indication: HAEMATOLOGY TEST ABNORMAL
     Route: 042
     Dates: start: 20100917, end: 20100924
  8. DEXAMETHASONE [Suspect]
     Indication: PRODUCT USED FOR UNKNOWN INDICATION
     Dates: start: 20100907, end: 20101010

REACTIONS (8)
  - HAEMORRHAGE [None]
  - RASH ERYTHEMATOUS [None]
  - PURPURA [None]
  - HAEMOGLOBIN DECREASED [None]
  - VAGINAL HAEMORRHAGE [None]
  - RASH MACULO-PAPULAR [None]
  - MELAENA [None]
  - RECTAL HAEMORRHAGE [None]
